FAERS Safety Report 7001751-5 (Version None)
Quarter: 2010Q3

REPORT INFORMATION
  Report Type: 
  Country: None (occurrence: None)
  Receive Date: 20100920
  Receipt Date: 20100910
  Transmission Date: 20110219
  Serious: Yes (Hospitalization)
  Sender: FDA-Public Use
  Company Number: AT-ASTRAZENECA-2010SE40977

PATIENT
  Age: 28432 Day
  Sex: Female
  Weight: 67 kg

DRUGS (11)
  1. ARIMIDEX [Suspect]
     Indication: BREAST CANCER
     Route: 048
     Dates: start: 20040616, end: 20090615
  2. ENALAPRIL+ HCT [Concomitant]
     Indication: HYPERTENSION
     Dosage: 20/12.5 MG DAILY
     Route: 048
  3. ENALAPRIL RATIOPHARM [Concomitant]
     Indication: HYPERTENSION
     Route: 048
  4. METOPROLOL TARTRATE [Concomitant]
     Indication: ISCHAEMIC HEART DISEASE PROPHYLAXIS
     Route: 048
  5. SIMVASTATIN [Concomitant]
     Indication: HYPERLIPIDAEMIA
     Route: 048
  6. OMEPRAZOLE [Concomitant]
     Indication: GASTRITIS PROPHYLAXIS
     Route: 048
  7. NOVOTHYRAL [Concomitant]
     Indication: HYPOTHYROIDISM
     Route: 048
  8. FOSAMAX [Concomitant]
     Indication: PROPHYLAXIS
     Route: 048
  9. CAL-D-VITAMIN [Concomitant]
     Indication: PROPHYLAXIS
     Dosage: TWO TIMES A DAY
     Route: 048
  10. HARMOMED [Concomitant]
     Indication: DEPRESSION
     Route: 048
  11. ASPIRIN [Concomitant]
     Indication: ANTICOAGULANT THERAPY
     Route: 048

REACTIONS (1)
  - UTERINE POLYP [None]
